FAERS Safety Report 11043555 (Version 1)
Quarter: 2015Q2

REPORT INFORMATION
  Report Type: Spontaneous
  Country: US (occurrence: None)
  Receive Date: 20150416
  Receipt Date: 20150416
  Transmission Date: 20150821
  Serious: Yes (Other)
  Sender: FDA-Public Use
  Company Number: None

PATIENT
  Age: 41 Year
  Sex: Female
  Weight: 60.78 kg

DRUGS (4)
  1. GENTRUM [Concomitant]
  2. OFLOXACIN. [Suspect]
     Active Substance: OFLOXACIN
     Indication: CONJUNCTIVITIS BACTERIAL
     Dosage: 1 DROP INTO THE EYE
     Dates: start: 20150219, end: 20150220
  3. IBUPROFEN. [Concomitant]
     Active Substance: IBUPROFEN
  4. LEVOTHYROXIN [Concomitant]
     Active Substance: LEVOTHYROXINE

REACTIONS (7)
  - Uveitis [None]
  - Eye swelling [None]
  - Eye irritation [None]
  - Chemical burns of eye [None]
  - Ocular hyperaemia [None]
  - Conjunctivitis viral [None]
  - Iritis [None]

NARRATIVE: CASE EVENT DATE: 20150219
